FAERS Safety Report 17146638 (Version 1)
Quarter: 2019Q4

REPORT INFORMATION
  Report Type: Spontaneous
  Country: UA (occurrence: UA)
  Receive Date: 20191212
  Receipt Date: 20191212
  Transmission Date: 20200122
  Serious: Yes (Other)
  Sender: FDA-Public Use
  Company Number: UA-ASTRAZENECA-2019SF76131

PATIENT
  Age: 60 Year
  Sex: Male

DRUGS (1)
  1. LYNPARZA [Suspect]
     Active Substance: OLAPARIB
     Indication: PANCREATIC CARCINOMA
     Dosage: 50.0MG UNKNOWN
     Route: 048

REACTIONS (4)
  - Metastases to lung [Unknown]
  - Malignant neoplasm progression [Unknown]
  - Off label use [Unknown]
  - Acquired gene mutation [Unknown]
